FAERS Safety Report 18799585 (Version 1)
Quarter: 2021Q1

REPORT INFORMATION
  Report Type: Report from Study
  Country: JP (occurrence: JP)
  Receive Date: 20210128
  Receipt Date: 20210128
  Transmission Date: 20210419
  Serious: Yes (Other)
  Sender: FDA-Public Use
  Company Number: JP-RECORDATI RARE DISEASES INC.-2021000179

PATIENT
  Age: 2 Day
  Sex: Female
  Weight: .18 kg

DRUGS (4)
  1. NEOPROFEN [Suspect]
     Active Substance: IBUPROFEN LYSINE
     Dosage: 9 MILLIGRAM, QD
     Route: 042
     Dates: start: 20190309, end: 20190309
  2. NEOPROFEN [Suspect]
     Active Substance: IBUPROFEN LYSINE
     Indication: PATENT DUCTUS ARTERIOSUS
     Dosage: 18 MILLIGRAM, QD
     Route: 042
     Dates: start: 20190307, end: 20190307
  3. NEOPROFEN [Suspect]
     Active Substance: IBUPROFEN LYSINE
     Dosage: 9 MILLIGRAM, QD
     Route: 042
     Dates: start: 20190310, end: 20190310
  4. LASIX + K [Concomitant]
     Active Substance: FUROSEMIDE\POTASSIUM CHLORIDE
     Indication: PRODUCT USED FOR UNKNOWN INDICATION
     Dosage: UNK
     Route: 065
     Dates: start: 20190309, end: 20190309

REACTIONS (2)
  - Hyponatraemia [Recovered/Resolved]
  - Urine output decreased [Recovering/Resolving]

NARRATIVE: CASE EVENT DATE: 20190308
